FAERS Safety Report 4916422-6 (Version None)
Quarter: 2006Q1

REPORT INFORMATION
  Report Type: 
  Country: None (occurrence: None)
  Receive Date: 20060214
  Receipt Date: 20060125
  Transmission Date: 20060701
  Serious: Yes (Other)
  Sender: FDA-Public Use
  Company Number: NL200601004196

PATIENT
  Age: 30 Year
  Sex: Male

DRUGS (3)
  1. STRATTERA [Suspect]
     Indication: ABNORMAL BEHAVIOUR
     Dosage: 80 MG, ORAL
     Route: 048
     Dates: end: 20060125
  2. CISORDINOL (CLOPENTHIXOL HYDROCHLORIDE) [Concomitant]
  3. DIPIPERON /GFR/(PIPAMPERONE) [Concomitant]

REACTIONS (6)
  - DEPRESSION [None]
  - INDIFFERENCE [None]
  - INJURY ASPHYXIATION [None]
  - INTENTIONAL SELF-INJURY [None]
  - SUICIDAL IDEATION [None]
  - SUICIDE ATTEMPT [None]
